FAERS Safety Report 8194120-6 (Version None)
Quarter: 2012Q1

REPORT INFORMATION
  Report Type: 
  Country: None (occurrence: None)
  Receive Date: 20120308
  Receipt Date: 20120229
  Transmission Date: 20120608
  Serious: Yes (Hospitalization)
  Sender: FDA-Public Use
  Company Number: AU-ALEXION-A201200397

PATIENT
  Sex: Female

DRUGS (3)
  1. PLATELETS [Concomitant]
     Dosage: UNK, WEEKLY
     Route: 042
  2. RED BLOOD CELLS [Concomitant]
     Dosage: UNK, Q2W
  3. SOLIRIS [Suspect]
     Indication: PAROXYSMAL NOCTURNAL HAEMOGLOBINURIA
     Dosage: 900 MG, UNK
     Route: 042
     Dates: start: 20110106

REACTIONS (3)
  - PYREXIA [None]
  - DYSPNOEA [None]
  - CHILLS [None]
